FAERS Safety Report 4470825-5 (Version None)
Quarter: 2004Q4

REPORT INFORMATION
  Report Type: 
  Country: None (occurrence: None)
  Receive Date: 20041006
  Receipt Date: 20041006
  Transmission Date: 20050328
  Serious: Yes (Other)
  Sender: FDA-Public Use
  Company Number: None

PATIENT
  Age: 30 Year
  Sex: Male
  Weight: 64.8644 kg

DRUGS (1)
  1. ACETAMINOPHEN [Suspect]
     Indication: ARTHRALGIA
     Dosage: 500 MG  SINGLE DOSE  ORAL
     Route: 048

REACTIONS (2)
  - DYSPHAGIA [None]
  - PHARYNGOLARYNGEAL PAIN [None]
